FAERS Safety Report 20337980 (Version 2)
Quarter: 2022Q1

REPORT INFORMATION
  Report Type: Report from Study
  Country: US (occurrence: US)
  Receive Date: 20220114
  Receipt Date: 20220309
  Transmission Date: 20220423
  Serious: Yes (Hospitalization)
  Sender: FDA-Public Use
  Company Number: US-OTSUKA PHARMACEUTICAL NETHERLANDS B.V.-AUR-000676

PATIENT
  Age: 41 Year
  Sex: Female

DRUGS (5)
  1. LUPKYNIS [Suspect]
     Active Substance: VOCLOSPORIN
     Indication: Lupus nephritis
     Dosage: 23.7 MILLIGRAM, BID
     Route: 048
     Dates: start: 20211028
  2. LUPKYNIS [Suspect]
     Active Substance: VOCLOSPORIN
     Dosage: 23.7 MILLIGRAM, BID
     Route: 048
     Dates: start: 20211026
  3. PREDNISONE [Concomitant]
     Active Substance: PREDNISONE
     Indication: Product used for unknown indication
     Dosage: UNK
  4. CANNABIS SATIVA SUBSP. INDICA TOP [Concomitant]
     Active Substance: CANNABIS SATIVA SUBSP. INDICA TOP
     Indication: Product used for unknown indication
     Dosage: UNK
  5. IRON [Concomitant]
     Active Substance: IRON
     Indication: Product used for unknown indication
     Dosage: UNK

REACTIONS (18)
  - Renal failure [Unknown]
  - Heart rate increased [Unknown]
  - Vision blurred [Unknown]
  - Rash [Unknown]
  - Malaise [Unknown]
  - Irritability [Unknown]
  - Blood pressure increased [Unknown]
  - Swelling [Unknown]
  - Mood altered [Unknown]
  - Blood glucose abnormal [Unknown]
  - COVID-19 [Unknown]
  - Dizziness [Unknown]
  - Acne [Unknown]
  - Swelling face [Unknown]
  - Anxiety [Unknown]
  - Alopecia [Unknown]
  - Absence of immediate treatment response [Unknown]
  - Inappropriate schedule of product administration [Unknown]

NARRATIVE: CASE EVENT DATE: 20211201
